FAERS Safety Report 5149814-3 (Version None)
Quarter: 2006Q4

REPORT INFORMATION
  Report Type: 
  Country: None (occurrence: None)
  Receive Date: 20061113
  Receipt Date: 20061010
  Transmission Date: 20070319
  Serious: Yes (Hospitalization)
  Sender: FDA-Public Use
  Company Number: US-ELI_LILLY_AND_COMPANY-US200610001569

PATIENT
  Age: 74 Year
  Sex: Female

DRUGS (4)
  1. HUMALOG [Suspect]
     Dosage: 20 U, 3/D
  2. GLYBURIDE [Concomitant]
     Dosage: 20 MG, UNK
     Dates: start: 20030101, end: 20040101
  3. METOPROLOL TARTRATE [Concomitant]
  4. LANTUS [Concomitant]
     Dosage: 45 U, EACH EVENING

REACTIONS (12)
  - BLOOD GLUCOSE INCREASED [None]
  - CYST [None]
  - DIZZINESS [None]
  - DRUG INEFFECTIVE [None]
  - ESCHERICHIA URINARY TRACT INFECTION [None]
  - FIBROMYALGIA [None]
  - GASTROINTESTINAL DISORDER [None]
  - MALAISE [None]
  - OEDEMA PERIPHERAL [None]
  - PAIN [None]
  - VISUAL ACUITY REDUCED [None]
  - WEIGHT DECREASED [None]
